FAERS Safety Report 13517655 (Version 3)
Quarter: 2017Q2

REPORT INFORMATION
  Report Type: Spontaneous
  Country: RO (occurrence: RO)
  Receive Date: 20170505
  Receipt Date: 20170530
  Transmission Date: 20170830
  Serious: Yes (Hospitalization)
  Sender: FDA-Public Use
  Company Number: RO-PFIZER INC-2017191880

PATIENT
  Age: 67 Year
  Sex: Male

DRUGS (3)
  1. TORISEL [Suspect]
     Active Substance: TEMSIROLIMUS
     Dosage: 25 MG, WEEKLY
     Route: 042
     Dates: start: 201612, end: 201701
  2. TORISEL [Suspect]
     Active Substance: TEMSIROLIMUS
     Dosage: 25 MG, WEEKLY
     Route: 042
  3. TORISEL [Suspect]
     Active Substance: TEMSIROLIMUS
     Indication: CLEAR CELL RENAL CELL CARCINOMA
     Dosage: 25 MG, WEEKLY
     Route: 042
     Dates: start: 201512, end: 201610

REACTIONS (14)
  - Spinal osteoarthritis [Unknown]
  - Hyperuricaemia [Recovered/Resolved]
  - Haematotoxicity [Recovered/Resolved]
  - Hypomagnesaemia [Unknown]
  - Osteolysis [Unknown]
  - Hyponatraemia [Unknown]
  - Hepatic lesion [Unknown]
  - Back pain [Unknown]
  - Hepatotoxicity [Recovered/Resolved]
  - Hypercalcaemia [Unknown]
  - Femoral neck fracture [Unknown]
  - Neoplasm progression [Not Recovered/Not Resolved]
  - Nephropathy [Unknown]
  - Anaemia [Unknown]

NARRATIVE: CASE EVENT DATE: 20160621
